FAERS Safety Report 12098950 (Version 1)
Quarter: 2016Q1

REPORT INFORMATION
  Report Type: Spontaneous
  Country: US (occurrence: US)
  Receive Date: 20160222
  Receipt Date: 20160222
  Transmission Date: 20160526
  Serious: No
  Sender: FDA-Public Use
  Company Number: US-TEVA-587139USA

PATIENT
  Sex: Female
  Weight: 63.56 kg

DRUGS (5)
  1. VITAMIN D [Concomitant]
     Active Substance: CHOLECALCIFEROL
  2. MULTIVITAMIN [Concomitant]
     Active Substance: VITAMINS
  3. LOPID [Concomitant]
     Active Substance: GEMFIBROZIL
  4. PAXIL [Concomitant]
     Active Substance: PAROXETINE HYDROCHLORIDE
  5. ALENDRONIC ACID [Suspect]
     Active Substance: ALENDRONIC ACID
     Indication: OSTEOPENIA
     Route: 065
     Dates: start: 20150806

REACTIONS (2)
  - Abdominal pain upper [Unknown]
  - Hyperhidrosis [Unknown]
